FAERS Safety Report 7465689-1 (Version None)
Quarter: 2011Q2

REPORT INFORMATION
  Report Type: 
  Country: None (occurrence: None)
  Receive Date: 20110509
  Receipt Date: 20110428
  Transmission Date: 20111010
  Serious: Yes (Hospitalization)
  Sender: FDA-Public Use
  Company Number: B0705382A

PATIENT
  Sex: Male

DRUGS (17)
  1. VALTREX [Suspect]
     Indication: HERPES ZOSTER
     Dosage: 2000MG PER DAY
     Route: 048
     Dates: start: 20110223, end: 20110228
  2. MOHRUS TAPE [Concomitant]
     Route: 062
  3. CALONAL [Concomitant]
     Route: 048
  4. PARIET [Concomitant]
     Route: 048
  5. DOXAZOSIN MESYLATE [Concomitant]
     Route: 048
  6. CALBLOCK [Concomitant]
     Route: 048
  7. NOVORAPID [Concomitant]
     Route: 058
  8. RISPERDAL [Concomitant]
  9. NORVASC [Concomitant]
     Route: 048
  10. KALIMATE [Concomitant]
     Route: 048
  11. MAGNESIUM OXIDE [Concomitant]
     Route: 048
  12. ARICEPT [Concomitant]
     Route: 048
  13. PROCYLIN [Concomitant]
     Route: 048
  14. ANPLAG [Concomitant]
     Route: 048
  15. LANTUS [Concomitant]
     Route: 058
  16. FUROSEMIDE [Concomitant]
     Route: 065
  17. GRAMALIL [Concomitant]
     Route: 048

REACTIONS (5)
  - BLOOD UREA INCREASED [None]
  - DEPRESSED LEVEL OF CONSCIOUSNESS [None]
  - RENAL DISORDER [None]
  - BLOOD CREATINE INCREASED [None]
  - HYPERGLYCAEMIA [None]
